FAERS Safety Report 9768018 (Version 1)
Quarter: 2013Q4

REPORT INFORMATION
  Report Type: Spontaneous
  Country: US (occurrence: None)
  Receive Date: 20131217
  Receipt Date: 20131217
  Transmission Date: 20140711
  Serious: Yes (Hospitalization)
  Sender: FDA-Public Use
  Company Number: 2012SP030202

PATIENT
  Age: 70 Year
  Sex: Female

DRUGS (2)
  1. INTEGRILIN (EPTIFIBATIDE) SOLUTION FOR INJECTION [Suspect]
     Indication: ACUTE MYOCARDIAL INFARCTION
     Dosage: , IV BOLUS
  2. METICORTEN (PREDNISONE) TABLET [Suspect]
     Indication: PRODUCT USED FOR UNKNOWN INDICATION
     Dosage: 5 MG, UNK

REACTIONS (1)
  - Platelet count decreased [None]
